FAERS Safety Report 13113663 (Version 2)
Quarter: 2017Q2

REPORT INFORMATION
  Report Type: Spontaneous
  Country: US (occurrence: US)
  Receive Date: 20170113
  Receipt Date: 20170628
  Transmission Date: 20170830
  Serious: No
  Sender: FDA-Public Use
  Company Number: US-BAYER-2017-001031

PATIENT
  Sex: Female

DRUGS (1)
  1. SKYLA [Suspect]
     Active Substance: LEVONORGESTREL
     Dosage: 14 MCG/24HR, CONT
     Route: 015

REACTIONS (10)
  - Pain in extremity [None]
  - Insomnia [None]
  - Chest pain [None]
  - Acne [None]
  - Genital paraesthesia [Unknown]
  - Mental disorder [None]
  - Anxiety [None]
  - Back pain [None]
  - Palpitations [None]
  - Anal infection [None]
